FAERS Safety Report 10784264 (Version 5)
Quarter: 2015Q2

REPORT INFORMATION
  Report Type: Spontaneous
  Country: JP (occurrence: JP)
  Receive Date: 20150211
  Receipt Date: 20150503
  Transmission Date: 20150821
  Serious: Yes (Hospitalization)
  Sender: FDA-Public Use
  Company Number: JP-009507513-1502JPN003983

PATIENT
  Age: 68 Year
  Sex: Male

DRUGS (6)
  1. EXCELASE [Concomitant]
     Dosage: UNK
     Dates: start: 20141027, end: 20150204
  2. FORXIGA [Suspect]
     Active Substance: DAPAGLIFLOZIN
     Indication: TYPE 2 DIABETES MELLITUS
     Dosage: 5 MG, QD
     Route: 048
     Dates: start: 20141027, end: 20150204
  3. GLIMEPIRIDE. [Concomitant]
     Active Substance: GLIMEPIRIDE
     Indication: TYPE 2 DIABETES MELLITUS
     Dosage: 1 MG, TWICE A DAY
     Route: 048
     Dates: start: 20140919, end: 20150204
  4. GLACTIV [Suspect]
     Active Substance: SITAGLIPTIN
     Indication: TYPE 2 DIABETES MELLITUS
     Dosage: 50 MG, ONCE A DAY
     Route: 048
     Dates: start: 20140919, end: 20150204
  5. ALINAMIN F (FURSULTIAMINE HYDROCHLORIDE) [Concomitant]
     Dosage: UNK
     Dates: start: 20141027, end: 20150204
  6. FAMOTIDINE. [Concomitant]
     Active Substance: FAMOTIDINE
     Dosage: UNK
     Route: 048
     Dates: start: 20141027, end: 20150204

REACTIONS (4)
  - Road traffic accident [Unknown]
  - Dehydration [Unknown]
  - Altered state of consciousness [Unknown]
  - Hyperglycaemia [Unknown]

NARRATIVE: CASE EVENT DATE: 20150204
